FAERS Safety Report 5746874-3 (Version None)
Quarter: 2008Q2

REPORT INFORMATION
  Report Type: 
  Country: None (occurrence: None)
  Receive Date: 20080522
  Receipt Date: 20080520
  Transmission Date: 20081010
  Serious: Yes (Other)
  Sender: FDA-Public Use
  Company Number: ES-PFIZER INC-2008042768

PATIENT
  Age: 43 Year
  Sex: Female

DRUGS (1)
  1. DETRUSITOL SR [Suspect]
     Indication: MICTURITION URGENCY
     Dosage: TEXT:DAILY
     Route: 048
     Dates: start: 20080213, end: 20080323

REACTIONS (2)
  - BREAST PAIN [None]
  - GALACTORRHOEA [None]
